FAERS Safety Report 14723644 (Version 6)
Quarter: 2023Q2

REPORT INFORMATION
  Report Type: Spontaneous
  Country: PT (occurrence: PT)
  Receive Date: 20180405
  Receipt Date: 20230410
  Transmission Date: 20230721
  Serious: Yes (Other)
  Sender: FDA-Public Use
  Company Number: PT-ACCORD-063421

PATIENT
  Age: 67 Year
  Sex: Female

DRUGS (14)
  1. FLUOROURACIL [Suspect]
     Active Substance: FLUOROURACIL
     Indication: Invasive ductal breast carcinoma
     Dosage: UNK,(ADMINISTERED EVERY THREE WEEKS, 3 CYCLE)
     Route: 065
     Dates: start: 2014
  2. FLUOROURACIL [Suspect]
     Active Substance: FLUOROURACIL
     Dosage: UNK UNK, Q3W
     Route: 065
  3. FLUOROURACIL [Suspect]
     Active Substance: FLUOROURACIL
     Dosage: UNK, Q3W, EVERY 3 WEEKS, 3 CYCLES
     Route: 065
     Dates: start: 2014
  4. EPIRUBICIN [Suspect]
     Active Substance: EPIRUBICIN
     Indication: Invasive ductal breast carcinoma
     Dosage: UNK UNK, CYCLE (ADMINISTERED EVERY THREE WEEKS)
     Route: 065
  5. EPIRUBICIN [Suspect]
     Active Substance: EPIRUBICIN
     Dosage: UNK, (THREE INITIAL CYCLES)
     Route: 065
  6. EPIRUBICIN [Suspect]
     Active Substance: EPIRUBICIN
     Dosage: UNK, Q3W, EVERY 3 WEEKS, 3 CYCLES
     Route: 065
     Dates: start: 2014
  7. EPIRUBICIN [Suspect]
     Active Substance: EPIRUBICIN
     Dosage: UNK UNK, Q3W
     Route: 065
  8. DOCETAXEL [Suspect]
     Active Substance: DOCETAXEL
     Indication: Invasive ductal breast carcinoma
     Dosage: UNK UNK, 3 CYCLE (ADMINISTERED EVERY THREE WEEKS)
     Route: 065
     Dates: start: 2014
  9. DOCETAXEL [Suspect]
     Active Substance: DOCETAXEL
     Dosage: UNK UNK, Q3W,THREE SUBSEQUENT CYCLES (INFUSION)
     Route: 065
  10. DOCETAXEL [Suspect]
     Active Substance: DOCETAXEL
     Dosage: UNK(INFUSION)
     Route: 065
  11. DOCETAXEL [Suspect]
     Active Substance: DOCETAXEL
     Dosage: UNK, Q3W, EVERY 3 WEEKS (3 CYCLES)
     Route: 065
     Dates: start: 2014
  12. CYCLOPHOSPHAMIDE [Suspect]
     Active Substance: CYCLOPHOSPHAMIDE
     Indication: Invasive ductal breast carcinoma
     Dosage: UNK UNK, (ADMINISTERED EVERY THREE WEEKS 3 CYCLES)
     Route: 065
  13. CYCLOPHOSPHAMIDE [Suspect]
     Active Substance: CYCLOPHOSPHAMIDE
     Dosage: UNK, Q3W, UNK (THREE INITIAL CYCLES)
     Route: 065
  14. CYCLOPHOSPHAMIDE [Suspect]
     Active Substance: CYCLOPHOSPHAMIDE
     Dosage: UNK UNK, EVERY 3 WEEKS, 3 CYCLES
     Route: 065
     Dates: start: 2014

REACTIONS (5)
  - Psoriasis [Recovering/Resolving]
  - Skin exfoliation [Recovered/Resolved]
  - Rash [Recovered/Resolved]
  - Skin plaque [Recovering/Resolving]
  - Skin lesion [Recovering/Resolving]

NARRATIVE: CASE EVENT DATE: 20140101
